FAERS Safety Report 8277654-5 (Version None)
Quarter: 2012Q2

REPORT INFORMATION
  Report Type: 
  Country: None (occurrence: None)
  Receive Date: 20120412
  Receipt Date: 20120409
  Transmission Date: 20120825
  Serious: Yes (Other)
  Sender: FDA-Public Use
  Company Number: US-PFIZER INC-2012072569

PATIENT
  Sex: Male
  Weight: 91 kg

DRUGS (5)
  1. COUMADIN [Concomitant]
     Indication: ANTICOAGULANT THERAPY
     Dosage: 0.5 MG, DAILY
  2. GABAPENTIN [Concomitant]
     Indication: NERVE INJURY
     Dosage: 600 MG, 4X/DAY
  3. DILANTIN-125 [Suspect]
     Indication: GRAND MAL CONVULSION
     Dosage: 100 MG, 4X/DAY
     Dates: start: 19840101
  4. LIPITOR [Concomitant]
     Indication: BLOOD CHOLESTEROL INCREASED
     Dosage: 40 MG, DAILY
  5. TRAMADOL [Concomitant]
     Indication: NERVE INJURY
     Dosage: 100 MG, 3-4 TIMES A DAY

REACTIONS (1)
  - ANXIETY [None]
